FAERS Safety Report 23957645 (Version 1)
Quarter: 2024Q2

REPORT INFORMATION
  Report Type: Spontaneous
  Country: RU (occurrence: RU)
  Receive Date: 20240610
  Receipt Date: 20240610
  Transmission Date: 20240716
  Serious: Yes (Hospitalization)
  Sender: FDA-Public Use
  Company Number: RU-PFIZER INC-202400188046

PATIENT
  Sex: Female

DRUGS (1)
  1. TALZENNA [Suspect]
     Active Substance: TALAZOPARIB TOSYLATE
     Indication: Breast cancer metastatic
     Dosage: 1 MG
     Dates: start: 20230912, end: 20240416

REACTIONS (1)
  - Haematotoxicity [Not Recovered/Not Resolved]

NARRATIVE: CASE EVENT DATE: 20240301
